FAERS Safety Report 7473748-2 (Version None)
Quarter: 2011Q2

REPORT INFORMATION
  Report Type: 
  Country: None (occurrence: None)
  Receive Date: 20110511
  Receipt Date: 20110503
  Transmission Date: 20111010
  Serious: Yes (Life-Threatening)
  Sender: FDA-Public Use
  Company Number: FR-BRISTOL-MYERS SQUIBB COMPANY-15731516

PATIENT
  Age: 72 Year
  Sex: Male

DRUGS (13)
  1. CAMPTOSAR [Suspect]
     Indication: COLON CANCER
     Dosage: NO OF COURSES:4
     Route: 042
     Dates: start: 20091230, end: 20101222
  2. IKOREL [Concomitant]
  3. PLAVIX [Concomitant]
  4. LEUCOVORIN CALCIUM [Suspect]
     Indication: COLON CANCER
     Dosage: NO OF COURSES:32
     Route: 042
     Dates: start: 20100505, end: 20101222
  5. ELOXATIN [Suspect]
     Indication: COLON CANCER
     Dosage: NO OF COURSES:4
     Route: 042
     Dates: start: 20100317, end: 20100428
  6. ERBITUX [Suspect]
     Indication: COLON CANCER
     Dosage: NO OF COURSES:3
     Route: 042
     Dates: start: 20100608, end: 20100713
  7. FLUOROURACIL [Suspect]
     Indication: COLON CANCER
     Dosage: NO OF COURSES:32
     Route: 042
     Dates: start: 20080505, end: 20101222
  8. AVASTIN [Suspect]
     Indication: COLON CANCER
     Dosage: NO OF COURSES:3
     Route: 042
     Dates: start: 20101117, end: 20101222
  9. METFORMIN HCL [Concomitant]
  10. TRANDOLAPRIL [Concomitant]
  11. MITOMYCIN [Suspect]
     Indication: COLON CANCER
     Dosage: NO OF COURSES:2
     Route: 042
     Dates: start: 20100813, end: 20100924
  12. FUROSEMIDE [Concomitant]
  13. ATORVASTATIN CALCIUM [Concomitant]

REACTIONS (1)
  - CARDIAC FAILURE [None]
